FAERS Safety Report 14338606 (Version 1)
Quarter: 2017Q4

REPORT INFORMATION
  Report Type: Spontaneous
  Country: FR (occurrence: FR)
  Receive Date: 20171229
  Receipt Date: 20171229
  Transmission Date: 20180321
  Serious: Yes (Hospitalization, Other)
  Sender: FDA-Public Use
  Company Number: FR-PFIZER INC-2017548005

PATIENT
  Age: 71 Year
  Sex: Male

DRUGS (2)
  1. BACTRIM [Suspect]
     Active Substance: SULFAMETHOXAZOLE\TRIMETHOPRIM
     Indication: POST PROCEDURAL INFECTION
     Dosage: UNK
     Route: 048
     Dates: start: 20170824, end: 20170904
  2. DALACINE [Suspect]
     Active Substance: CLINDAMYCIN HYDROCHLORIDE
     Indication: POST PROCEDURAL INFECTION
     Dosage: 300 MG
     Route: 048
     Dates: start: 20170907, end: 20170928

REACTIONS (3)
  - Purpura [Recovered/Resolved]
  - Oedema peripheral [Recovered/Resolved]
  - Nephrotic syndrome [Recovering/Resolving]

NARRATIVE: CASE EVENT DATE: 20170923
